FAERS Safety Report 4529642-X (Version None)
Quarter: 2004Q4

REPORT INFORMATION
  Report Type: 
  Country: None (occurrence: None)
  Receive Date: 20041216
  Receipt Date: 20041115
  Transmission Date: 20050328
  Serious: Yes (Disabling)
  Sender: FDA-Public Use
  Company Number: US-MERCK-0411USA02624

PATIENT
  Age: 58 Year
  Sex: Male

DRUGS (5)
  1. VIOXX [Suspect]
     Indication: ARTHRITIS
     Route: 048
     Dates: start: 20030801, end: 20041001
  2. VIOXX [Suspect]
     Indication: PAIN MANAGEMENT
     Route: 048
     Dates: start: 20030801, end: 20041001
  3. MICARDIS HCT [Concomitant]
     Route: 065
  4. DIOVAN [Concomitant]
     Route: 065
  5. TOPROL-XL [Concomitant]
     Route: 065

REACTIONS (4)
  - BLOOD PRESSURE INCREASED [None]
  - CHEST PAIN [None]
  - FLUID RETENTION [None]
  - HEART RATE INCREASED [None]
